FAERS Safety Report 7943823-4 (Version None)
Quarter: 2011Q4

REPORT INFORMATION
  Report Type: 
  Country: None (occurrence: None)
  Receive Date: 20111128
  Receipt Date: 20111121
  Transmission Date: 20120403
  Serious: Yes (Hospitalization)
  Sender: FDA-Public Use
  Company Number: JP-ROCHE-1016308

PATIENT
  Sex: Male

DRUGS (4)
  1. ACTEMRA [Suspect]
     Route: 041
     Dates: start: 20110316, end: 20110330
  2. ACTEMRA [Suspect]
     Route: 041
     Dates: start: 20110427
  3. ACTEMRA [Suspect]
     Indication: CASTLEMAN'S DISEASE
     Route: 041
     Dates: start: 20101215, end: 20110119
  4. ACTEMRA [Suspect]
     Route: 041
     Dates: start: 20110202, end: 20110302

REACTIONS (2)
  - ASCITES [None]
  - PNEUMONIA [None]
